FAERS Safety Report 24235071 (Version 1)
Quarter: 2024Q3

REPORT INFORMATION
  Report Type: Spontaneous
  Country: IN (occurrence: IN)
  Receive Date: 20240821
  Receipt Date: 20240821
  Transmission Date: 20241017
  Serious: Yes (Other)
  Sender: Alora Pharma
  Company Number: IN-ACELLA PHARMACEUTICALS, LLC-2024ALO00403

PATIENT
  Age: 64 Year
  Sex: Female

DRUGS (12)
  1. DEXTROMETHORPHAN [Suspect]
     Active Substance: DEXTROMETHORPHAN
     Indication: Cough
     Dosage: 10 MG PER 5 ML; SYRUP; 10 ML THRICE DAILY
     Route: 048
  2. CHLORPHENIRAMINE MALEATE [Concomitant]
     Active Substance: CHLORPHENIRAMINE MALEATE
     Indication: Cough
     Dosage: 4 MG PER 5 ML (IN COMBINATION WITH DEXTROMETHORPHAN)
     Route: 048
  3. FUROSEMIDE [Concomitant]
     Active Substance: FUROSEMIDE
     Dosage: 60 MG IN DIVIDED DOSES
     Route: 042
  4. DOBUTAMINE [Concomitant]
     Active Substance: DOBUTAMINE HYDROCHLORIDE
     Dosage: INFUSION FOR 24 HOURS
  5. ASPIRIN [Concomitant]
     Active Substance: ASPIRIN
     Dosage: 75 MG, 1X/DAY
     Route: 048
  6. TICAGRELOR [Concomitant]
     Active Substance: TICAGRELOR
     Dosage: 90 MG, 2X/DAY
  7. ROSUVASTATIN [Concomitant]
     Active Substance: ROSUVASTATIN\ROSUVASTATIN CALCIUM
     Dosage: 20 MG, 1X/DAY
  8. CARVEDILOL [Concomitant]
     Active Substance: CARVEDILOL
     Dosage: 3.125 MG, HALF TWICE DAILY
  9. HYDRALAZINE HYDROCHLORIDE;ISOSORBIDE DINITRATE [Concomitant]
     Dosage: 20 MG, 2X/DAY
  10. LEVOTHYROXINE [Concomitant]
     Active Substance: LEVOTHYROXINE\LEVOTHYROXINE SODIUM
     Dosage: 75 ?G, 1X/DAY
  11. DAPAGLIFLOZIN [Concomitant]
     Active Substance: DAPAGLIFLOZIN
     Dosage: 10 MG, 1X/DAY
  12. INSULIN HUMAN [Concomitant]
     Active Substance: INSULIN HUMAN
     Dosage: PER THE REQUIREMENT WHILE IN THE HOSPITAL

REACTIONS (1)
  - Dystonia [Recovered/Resolved]
